FAERS Safety Report 7422641-X (Version None)
Quarter: 2011Q2

REPORT INFORMATION
  Report Type: 
  Country: None (occurrence: None)
  Receive Date: 20110419
  Receipt Date: 20110411
  Transmission Date: 20111010
  Serious: Yes (Other)
  Sender: FDA-Public Use
  Company Number: JP-US-EMD SERONO, INC.-7047038

PATIENT
  Sex: Female

DRUGS (2)
  1. GONAL-F RFF PEN [Suspect]
     Indication: OVULATION DISORDER
     Route: 058
     Dates: start: 20110303, end: 20110305
  2. CLOMID [Concomitant]
     Indication: OVULATION DISORDER
     Route: 048
     Dates: start: 20110303, end: 20110313

REACTIONS (2)
  - ANAPHYLACTOID REACTION [None]
  - RASH PAPULAR [None]
